FAERS Safety Report 9890919 (Version 1)
Quarter: 2014Q1

REPORT INFORMATION
  Report Type: Spontaneous
  Country: US (occurrence: None)
  Receive Date: 20140210
  Receipt Date: 20140210
  Transmission Date: 20141002
  Serious: No
  Sender: FDA-Public Use
  Company Number: None

PATIENT
  Age: 44 Year
  Sex: Female
  Weight: 54.89 kg

DRUGS (5)
  1. SKYLA [Suspect]
     Indication: CONTRACEPTION
     Dosage: 1 X EVERY 3 YRS?INTRAUTERINE
     Route: 015
     Dates: start: 20140128
  2. WELLBUTRIN XL [Concomitant]
  3. FLINSTONE VITAMIN [Concomitant]
  4. VIT D [Concomitant]
  5. ALLEVE [Concomitant]

REACTIONS (9)
  - Back pain [None]
  - Abdominal pain [None]
  - Gait disturbance [None]
  - Musculoskeletal pain [None]
  - Pain in extremity [None]
  - Arthralgia [None]
  - Asthenia [None]
  - Arthralgia [None]
  - Malaise [None]
